FAERS Safety Report 20291305 (Version 1)
Quarter: 2022Q1

REPORT INFORMATION
  Report Type: Spontaneous
  Country: NL (occurrence: NL)
  Receive Date: 20220104
  Receipt Date: 20220104
  Transmission Date: 20220423
  Serious: Yes (Life-Threatening)
  Sender: FDA-Public Use
  Company Number: None

PATIENT
  Age: 49 Year
  Sex: Male
  Weight: 84 kg

DRUGS (13)
  1. TRANEXAMIC ACID [Suspect]
     Active Substance: TRANEXAMIC ACID
     Indication: Angioedema
     Dosage: TWICE 500MG : SINGLE ADMINISTRATION
     Dates: start: 20211208
  2. LORAZEPAM [Concomitant]
     Active Substance: LORAZEPAM
     Dosage: 2.5 MILLIGRAM (TABLET, 2,5 MG (MILLIGRAM))
  3. ASCORBINEZUUR [Concomitant]
     Dosage: 500 MILLIGRAM (TABLET, 500 MG (MILLIGRAM))
  4. ATORVASTATIN [Concomitant]
     Active Substance: ATORVASTATIN
     Dosage: 80 MILLIGRAM (TABLET, 80 MG (MILLIGRAM)
  5. CARBASPIRIN CALCIUM [Concomitant]
     Active Substance: CARBASPIRIN CALCIUM
     Dosage: 100 MILLIGRAM/BRUISTABLET, 100 MG (MILLIGRAM)
  6. NICOTINELL [Concomitant]
     Active Substance: NICOTINE
     Dosage: 21 MILLIGRAM, QD/PLASTER, 21 MG (MILLIGRAM) PER 24 HOUR
  7. METOPROLOL [Concomitant]
     Active Substance: METOPROLOL
     Dosage: 100 MILLIGRAM/MODIFIED RELEASE TABLET, 100 MILLIGRAM
  8. PANTOPRAZOLE SODIUM [Concomitant]
     Active Substance: PANTOPRAZOLE SODIUM
     Dosage: GASTRORESISTANT TABLET, 40 MG (MILLIGRAM)
  9. TICAGRELOR [Concomitant]
     Active Substance: TICAGRELOR
     Dosage: TABLET, 90 MG (MILLIGRAM)
  10. CYANOCOBALAMIN\PYRIDOXINE HYDROCHLORIDE\RIBOFLAVIN\SODIUM PANTOTHENATE [Concomitant]
     Active Substance: CYANOCOBALAMIN\PYRIDOXINE HYDROCHLORIDE\RIBOFLAVIN\SODIUM PANTOTHENATE\THIAMINE HYDROCHLORIDE\VITAMI
     Dosage: TABLET
  11. ENALAPRIL [Concomitant]
     Active Substance: ENALAPRIL
     Dosage: 5 MILLIGRAM/TABLET, 5 MG (MILLIGRAM)
  12. DESLORATADINE [Concomitant]
     Active Substance: DESLORATADINE
     Dosage: 5 MILLIGRAM/TABLET, 5 MG (MILLIGRAM)
  13. THIAMINE [Concomitant]
     Active Substance: THIAMINE
     Dosage: 100 MILLIGRAM (TABLET, 100 MG (MILLIGRAM))

REACTIONS (1)
  - Vascular stent thrombosis [Not Recovered/Not Resolved]

NARRATIVE: CASE EVENT DATE: 20211208
